FAERS Safety Report 8415223-4 (Version None)
Quarter: 2012Q2

REPORT INFORMATION
  Report Type: 
  Country: None (occurrence: None)
  Receive Date: 20120606
  Receipt Date: 20120604
  Transmission Date: 20120825
  Serious: Yes (Hospitalization)
  Sender: FDA-Public Use
  Company Number: BR-BAYER-2012-034673

PATIENT
  Age: 52 Year
  Sex: Female

DRUGS (1)
  1. BETASERON [Suspect]
     Indication: MULTIPLE SCLEROSIS
     Dosage: 8 MIU, QOD
     Route: 058
     Dates: start: 20111209

REACTIONS (6)
  - DIZZINESS [None]
  - INJECTION SITE SWELLING [None]
  - NAUSEA [None]
  - INJECTION SITE ERYTHEMA [None]
  - FATIGUE [None]
  - MEMORY IMPAIRMENT [None]
